FAERS Safety Report 4322314-6 (Version None)
Quarter: 2004Q1

REPORT INFORMATION
  Report Type: 
  Country: None (occurrence: None)
  Receive Date: 20040319
  Receipt Date: 20040303
  Transmission Date: 20041129
  Serious: Yes (Hospitalization, Other)
  Sender: FDA-Public Use
  Company Number: ZANA001146

PATIENT
  Age: 60 Year
  Sex: Female
  Weight: 32 kg

DRUGS (14)
  1. TIZANIDINE HCL [Suspect]
     Indication: MUSCULOSKELETAL PAIN
     Dosage: 3 MG DAILY ORAL
     Route: 048
     Dates: start: 20011019, end: 20020118
  2. LANSOPRAZOLE [Concomitant]
  3. METHOTREXATE [Concomitant]
  4. FOLIAMIN (FOLIC ACID) [Concomitant]
  5. PREDNISOLONE [Concomitant]
  6. FLUCAM (AMPIROXICAM) [Concomitant]
  7. CYTOTEC [Concomitant]
  8. DEPAS (ETIZOLAM) [Concomitant]
  9. BIOFERMIN R (STREPTOCOCCUS FAECALIS) [Concomitant]
  10. SELBEX (TEPRENONE) [Concomitant]
  11. BERIZYM (ENZYMES NOS) [Concomitant]
  12. GASMOTIN [Concomitant]
  13. ALINAMIN F (FURSULTIAMINE) [Concomitant]
  14. CEREKINON (TRIMEBUTINE MALEATE) [Concomitant]

REACTIONS (3)
  - CONDITION AGGRAVATED [None]
  - HEPATITIS B [None]
  - TREATMENT NONCOMPLIANCE [None]
